FAERS Safety Report 25397065 (Version 3)
Quarter: 2025Q2

REPORT INFORMATION
  Report Type: Report from Study
  Country: IT (occurrence: IT)
  Receive Date: 20250604
  Receipt Date: 20250619
  Transmission Date: 20250717
  Serious: Yes (Hospitalization, Other)
  Sender: GILEAD
  Company Number: IT-GILEAD-2025-0715545

PATIENT
  Age: 38 Year
  Sex: Male

DRUGS (1)
  1. BREXUCABTAGENE AUTOLEUCEL [Suspect]
     Active Substance: BREXUCABTAGENE AUTOLEUCEL
     Indication: Mantle cell lymphoma recurrent
     Route: 065
     Dates: start: 202503

REACTIONS (2)
  - Tumour flare [Unknown]
  - Cytokine release syndrome [Recovered/Resolved]
